FAERS Safety Report 24667961 (Version 1)
Quarter: 2024Q4

REPORT INFORMATION
  Report Type: Report from Study
  Country: CN (occurrence: CN)
  Receive Date: 20241127
  Receipt Date: 20241127
  Transmission Date: 20250115
  Serious: Yes (Other)
  Sender: ROCHE
  Company Number: CN-ROCHE-10000137109

PATIENT

DRUGS (1)
  1. BEVACIZUMAB [Suspect]
     Active Substance: BEVACIZUMAB
     Indication: Epilepsy
     Route: 065

REACTIONS (15)
  - Epistaxis [Unknown]
  - Fatigue [Unknown]
  - Hypertension [Unknown]
  - Diarrhoea [Unknown]
  - Myelosuppression [Unknown]
  - Somnolence [Unknown]
  - Proteinuria [Unknown]
  - Hepatic function abnormal [Unknown]
  - Sleep disorder [Unknown]
  - Nausea [Unknown]
  - Vomiting [Unknown]
  - Skin disorder [Unknown]
  - Abdominal pain [Unknown]
  - Diplopia [Unknown]
  - Vision blurred [Unknown]
